FAERS Safety Report 14671543 (Version 1)
Quarter: 2018Q1

REPORT INFORMATION
  Report Type: Spontaneous
  Country: KR (occurrence: KR)
  Receive Date: 20180323
  Receipt Date: 20180323
  Transmission Date: 20180509
  Serious: Yes (Other)
  Sender: FDA-Public Use
  Company Number: KR-INGENUS PHARMACEUTICALS, LLC-INF201803-000233

PATIENT
  Age: 66 Year
  Sex: Female

DRUGS (2)
  1. CARBOPLATIN. [Suspect]
     Active Substance: CARBOPLATIN
     Indication: OVARIAN CANCER
  2. PACLITAXEL. [Suspect]
     Active Substance: PACLITAXEL
     Indication: OVARIAN CANCER

REACTIONS (7)
  - Intervertebral discitis [Recovered/Resolved]
  - Febrile neutropenia [Recovered/Resolved]
  - Pseudomembranous colitis [Recovered/Resolved]
  - Diarrhoea [Recovered/Resolved]
  - Systemic candida [Recovered/Resolved]
  - Candida infection [Recovered/Resolved]
  - Abdominal pain [Recovered/Resolved]
